FAERS Safety Report 9761065 (Version 3)
Quarter: 2014Q2

REPORT INFORMATION
  Report Type: Spontaneous
  Country: CN (occurrence: CN)
  Receive Date: 20131216
  Receipt Date: 20140618
  Transmission Date: 20141212
  Serious: Yes (Other)
  Sender: FDA-Public Use
  Company Number: CN-BAYER-2013-152868

PATIENT
  Age: 51 Year
  Sex: Male

DRUGS (4)
  1. ULTRAVIST 370 [Suspect]
     Indication: COMPUTERISED TOMOGRAM CORONARY ARTERY
     Dosage: 85 ML, ONCE
     Dates: start: 20131212, end: 20131212
  2. ULTRAVIST 370 [Suspect]
     Indication: ABDOMINAL PAIN
  3. METOPROLOL [Concomitant]
     Dosage: 1 DF, UNK
     Route: 048
     Dates: start: 20131212
  4. NITROGLYCERIN [Concomitant]
     Dosage: 1 DF, UNK
     Route: 060
     Dates: start: 20131212

REACTIONS (5)
  - Amaurosis [Recovered/Resolved]
  - Hypersensitivity [Recovered/Resolved]
  - Blood pressure decreased [Recovered/Resolved]
  - Hyperhidrosis [Recovered/Resolved]
  - Nausea [Recovered/Resolved]
